FAERS Safety Report 21920685 (Version 1)
Quarter: 2023Q1

REPORT INFORMATION
  Report Type: Spontaneous
  Country: US (occurrence: None)
  Receive Date: 20230127
  Receipt Date: 20230127
  Transmission Date: 20230418
  Serious: Yes (Other)
  Sender: FDA-Public Use
  Company Number: US-ROCHE-3270076

PATIENT
  Age: 56 Year
  Sex: Female

DRUGS (2)
  1. ALECTINIB [Suspect]
     Active Substance: ALECTINIB
     Indication: Non-small cell lung cancer
     Route: 065
     Dates: start: 2016, end: 2017
  2. XALKORI [Suspect]
     Active Substance: CRIZOTINIB
     Indication: Non-small cell lung cancer
     Route: 065
     Dates: start: 2016, end: 2017

REACTIONS (3)
  - Metastases to central nervous system [Unknown]
  - Pneumonia [Unknown]
  - Bronchitis [Unknown]
